FAERS Safety Report 5228713-2 (Version None)
Quarter: 2007Q1

REPORT INFORMATION
  Report Type: 
  Country: None (occurrence: None)
  Receive Date: 20070205
  Receipt Date: 20070125
  Transmission Date: 20070707
  Serious: Yes (Other)
  Sender: FDA-Public Use
  Company Number: PHBS2007BR00619

PATIENT
  Age: 56 Year
  Sex: Female

DRUGS (3)
  1. ZOMETA [Suspect]
     Indication: BREAST CANCER
     Dosage: 4 MG, EVERY 4 WEEKS
     Route: 065
     Dates: start: 20031101, end: 20060801
  2. TAMOXIFEN CITRATE [Concomitant]
     Dosage: UNK, UNK
     Route: 065
     Dates: start: 20031101
  3. FASLODEX [Concomitant]
     Indication: HORMONE THERAPY
     Route: 065

REACTIONS (5)
  - BONE DISORDER [None]
  - DENTAL IMPLANTATION [None]
  - DENTAL OPERATION [None]
  - OSTEONECROSIS [None]
  - WOUND DEBRIDEMENT [None]
